FAERS Safety Report 17835110 (Version 1)
Quarter: 2020Q2

REPORT INFORMATION
  Report Type: Spontaneous
  Country: GB (occurrence: GB)
  Receive Date: 20200528
  Receipt Date: 20200528
  Transmission Date: 20200714
  Serious: Yes (Life-Threatening, Other)
  Sender: FDA-Public Use
  Company Number: GB-TEVA-2020-GB-1240548

PATIENT
  Age: 93 Year
  Sex: Male

DRUGS (5)
  1. WARFARIN [Suspect]
     Active Substance: WARFARIN
     Indication: ATRIAL FIBRILLATION
     Route: 065
  2. CLARITHROMYCIN. [Concomitant]
     Active Substance: CLARITHROMYCIN
     Indication: COVID-19 TREATMENT
  3. DOXYCYCLINE. [Concomitant]
     Active Substance: DOXYCYCLINE
     Indication: COVID-19 TREATMENT
  4. FINASTERIDE. [Concomitant]
     Active Substance: FINASTERIDE
  5. ACCORD-UK CALCIUM AND ERGOCALCIFEROL [Concomitant]

REACTIONS (1)
  - International normalised ratio increased [Recovered/Resolved]
